FAERS Safety Report 5441774-0 (Version None)
Quarter: 2007Q3

REPORT INFORMATION
  Report Type: 
  Country: None (occurrence: None)
  Receive Date: 20070830
  Receipt Date: 20070830
  Transmission Date: 20080115
  Serious: Yes (Life-Threatening)
  Sender: FDA-Public Use
  Company Number: None

PATIENT
  Age: 69 Year
  Sex: Male

DRUGS (1)
  1. METHOTREXATE [Suspect]
     Indication: PSORIASIS
     Dosage: 2.5 MG EVERY DAY PO
     Route: 048
     Dates: start: 19920801, end: 20070824

REACTIONS (2)
  - HEPATIC CIRRHOSIS [None]
  - HODGKIN'S DISEASE [None]
